FAERS Safety Report 4951392-6 (Version None)
Quarter: 2006Q1

REPORT INFORMATION
  Report Type: 
  Country: None (occurrence: None)
  Receive Date: 20060323
  Receipt Date: 20051101
  Transmission Date: 20060701
  Serious: Yes (Hospitalization, Other)
  Sender: FDA-Public Use
  Company Number: US-AMGEN-US156414

PATIENT
  Sex: Female
  Weight: 83.2 kg

DRUGS (14)
  1. ENBREL [Suspect]
     Indication: RHEUMATOID ARTHRITIS
     Route: 058
     Dates: start: 20030301, end: 20051022
  2. NEUPOGEN [Suspect]
     Indication: NEUTROPENIA
     Dates: start: 20051101
  3. IBUPROFEN [Concomitant]
     Indication: ARTHRITIS
  4. TRAMADOL HCL [Concomitant]
     Indication: ARTHRITIS
  5. TYLENOL W/ CODEINE NO. 3 [Concomitant]
     Indication: ARTHRITIS
  6. LANSOPRAZOLE [Concomitant]
  7. RISEDRONATE [Concomitant]
     Route: 048
  8. LEVOTHYROXINE SODIUM [Concomitant]
  9. ALBUTEROL [Concomitant]
  10. PATANOL [Concomitant]
     Route: 047
  11. VOLTAREN [Concomitant]
     Route: 047
  12. ASPIRIN [Concomitant]
  13. TRAZODONE HCL [Concomitant]
  14. CELECOXIB [Concomitant]

REACTIONS (10)
  - COUGH [None]
  - FATIGUE [None]
  - FEBRILE NEUTROPENIA [None]
  - KLEBSIELLA INFECTION [None]
  - MALAISE [None]
  - PANCYTOPENIA [None]
  - PYREXIA [None]
  - SPUTUM DISCOLOURED [None]
  - TENOSYNOVITIS [None]
  - URINARY TRACT INFECTION [None]
